FAERS Safety Report 10274187 (Version 1)
Quarter: 2014Q3

REPORT INFORMATION
  Report Type: Spontaneous
  Country: US (occurrence: US)
  Receive Date: 20140702
  Receipt Date: 20140702
  Transmission Date: 20150326
  Serious: No
  Sender: FDA-Public Use
  Company Number: US-PFIZER INC-2014180079

PATIENT
  Age: 40 Year
  Sex: Male
  Weight: 89.34 kg

DRUGS (4)
  1. NIACIN. [Concomitant]
     Active Substance: NIACIN
     Dosage: UNK
  2. PROTONIX [Suspect]
     Active Substance: PANTOPRAZOLE SODIUM
     Indication: GASTROOESOPHAGEAL REFLUX DISEASE
     Dosage: 40 MG, 2X/DAY
     Route: 048
     Dates: start: 2003
  3. BYSTOLIC [Concomitant]
     Active Substance: NEBIVOLOL HYDROCHLORIDE
     Dosage: UNK
  4. VIAGRA [Concomitant]
     Active Substance: SILDENAFIL CITRATE
     Dosage: UNK

REACTIONS (1)
  - Hyperlipidaemia [Unknown]

NARRATIVE: CASE EVENT DATE: 2003
